FAERS Safety Report 10384736 (Version 1)
Quarter: 2014Q1

REPORT INFORMATION
  Report Type: Spontaneous
  Country: US (occurrence: None)
  Receive Date: 20140306
  Receipt Date: 20140306
  Transmission Date: 20141002
  Serious: Yes (Other)
  Sender: FDA-Public Use
  Company Number: 163-21880-13043522

PATIENT
  Age: 53 Year
  Sex: Male
  Weight: 67.13 kg

DRUGS (11)
  1. REVLIMID (LENALIDOMIDE) (15 MILLIGRAM, CAPSULES) [Suspect]
     Indication: PLASMA CELL MYELOMA
     Route: 048
     Dates: start: 200905, end: 2009
  2. ZOMETA (ZOLEDRONIC ACID) (UNKNOWN) [Suspect]
     Indication: PRODUCT USED FOR UNKNOWN INDICATION
     Dates: end: 201302
  3. ACYCLOVIR (ACICLOVIR) (ACICLOVIR) [Concomitant]
  4. ADULT LOW DOSE ASPIRIN (ACETYLSALICYLIC ACID) [Concomitant]
  5. CALCIUM [Concomitant]
  6. CELEXA (CITALOPRAM HYDROBROMIDE) [Concomitant]
  7. FISH OIL OMEGA-3 (FISH OIL) [Concomitant]
  8. NORVASC (AMLODIPINE BESILATE) [Concomitant]
  9. PRAVACHOL (PRAVASTATIN SODIUM) [Concomitant]
  10. PROTONIX (PANTOPRAZOLE) [Concomitant]
  11. VITAMIN B-12 (CYANOCOBALAMIN) [Concomitant]

REACTIONS (1)
  - Renal disorder [None]
